FAERS Safety Report 19906215 (Version 1)
Quarter: 2021Q3

REPORT INFORMATION
  Report Type: Spontaneous
  Country: US (occurrence: US)
  Receive Date: 20210930
  Receipt Date: 20210930
  Transmission Date: 20211014
  Serious: No
  Sender: FDA-Public Use
  Company Number: US-AMGEN-USASP2021149621

PATIENT
  Age: 42 Year
  Sex: Female

DRUGS (1)
  1. OTEZLA [Suspect]
     Active Substance: APREMILAST
     Indication: PSORIASIS
     Dosage: UNK, BID (ONE TABLET)
     Route: 065
     Dates: start: 20150521

REACTIONS (3)
  - Therapy non-responder [Not Recovered/Not Resolved]
  - Surgery [Not Recovered/Not Resolved]
  - Psoriasis [Not Recovered/Not Resolved]
